FAERS Safety Report 11770419 (Version 2)
Quarter: 2015Q4

REPORT INFORMATION
  Report Type: Spontaneous
  Country: US (occurrence: US)
  Receive Date: 20151123
  Receipt Date: 20151123
  Transmission Date: 20160304
  Serious: No
  Sender: FDA-Public Use
  Company Number: US-PERRIGO-15US007089

PATIENT
  Age: 73 Year
  Sex: Male
  Weight: 98.87 kg

DRUGS (5)
  1. RANITIDINE [Concomitant]
     Active Substance: RANITIDINE\RANITIDINE HYDROCHLORIDE
     Indication: DYSPEPSIA
     Dosage: UNK, PRN
     Route: 065
  2. POLYETHYLENE GLYCOL 3350. [Suspect]
     Active Substance: POLYETHYLENE GLYCOL 3350
     Indication: CONSTIPATION
     Dosage: 17 G, QD
     Route: 048
     Dates: start: 20150613, end: 20150705
  3. MELOXICAM. [Suspect]
     Active Substance: MELOXICAM
     Indication: PAIN
     Dosage: 15 MG, ONCE DAILY
     Route: 048
     Dates: start: 20150603, end: 20150705
  4. NORCO [Suspect]
     Active Substance: ACETAMINOPHEN\HYDROCODONE BITARTRATE
     Indication: PAIN
     Dosage: 1 TABLET, PRN
     Route: 048
     Dates: start: 20150603, end: 20150705
  5. GABAPENTIN. [Suspect]
     Active Substance: GABAPENTIN
     Indication: PAIN
     Dosage: 1 CAPSULE, ONCE TO TWICE A DAY
     Route: 048
     Dates: start: 20150610, end: 20150705

REACTIONS (2)
  - Peripheral swelling [Not Recovered/Not Resolved]
  - Incorrect drug administration duration [Recovered/Resolved]

NARRATIVE: CASE EVENT DATE: 20150620
